FAERS Safety Report 9698264 (Version 1)
Quarter: 2013Q4

REPORT INFORMATION
  Report Type: Spontaneous
  Country: US (occurrence: None)
  Receive Date: 20131031
  Receipt Date: 20131031
  Transmission Date: 20140711
  Serious: Yes (Other)
  Sender: FDA-Public Use
  Company Number: 43441

PATIENT
  Age: 45 Year
  Sex: Male
  Weight: 101.61 kg

DRUGS (7)
  1. GLASSIA [Suspect]
     Indication: ALPHA-1 ANTI-TRYPSIN DEFICIENCY
     Route: 042
     Dates: start: 201204
  2. ADVAIR [Concomitant]
  3. PRO-AIR [Concomitant]
  4. ALBUTEROL NEBULIZER [Concomitant]
  5. GENERIC FLOMAX [Concomitant]
  6. PROTONIX [Concomitant]
  7. LOPRESSOR [Concomitant]

REACTIONS (7)
  - Thrombosis [None]
  - Spinal column stenosis [None]
  - Headache [None]
  - Nerve compression [None]
  - Hypoaesthesia [None]
  - Nasopharyngitis [None]
  - Condition aggravated [None]
